FAERS Safety Report 19194957 (Version 1)
Quarter: 2021Q2

REPORT INFORMATION
  Report Type: Spontaneous
  Country: CA (occurrence: CA)
  Receive Date: 20210429
  Receipt Date: 20210429
  Transmission Date: 20210717
  Serious: Yes (Hospitalization, Other)
  Sender: FDA-Public Use
  Company Number: CA-AUROBINDO-AUR-APL-2021-017146

PATIENT
  Age: 66 Year
  Sex: Female
  Weight: 64 kg

DRUGS (2)
  1. BIO AMLODIPINE [Suspect]
     Active Substance: AMLODIPINE BESYLATE
     Indication: HYPERTENSION
     Dosage: 2.5 MILLIGRAM, ONCE A DAY
     Route: 048
  2. VALSARTAN AND HYDROCHLOROTHIAZIDE [Suspect]
     Active Substance: HYDROCHLOROTHIAZIDE\VALSARTAN
     Indication: HYPERTENSION
     Dosage: 1 DOSAGE FORM, ONCE A DAY
     Route: 048

REACTIONS (3)
  - Asthenia [Not Recovered/Not Resolved]
  - Orthostatic hypotension [Not Recovered/Not Resolved]
  - Hypokalaemia [Not Recovered/Not Resolved]
